FAERS Safety Report 23949608 (Version 1)
Quarter: 2024Q2

REPORT INFORMATION
  Report Type: Spontaneous
  Country: US (occurrence: US)
  Receive Date: 20240607
  Receipt Date: 20240607
  Transmission Date: 20240716
  Serious: Yes (Other)
  Sender: FDA-Public Use
  Company Number: US-ROCHE-2275643

PATIENT
  Sex: Male

DRUGS (6)
  1. VALGANCICLOVIR [Suspect]
     Active Substance: VALGANCICLOVIR
     Indication: Lung transplant
     Route: 048
     Dates: end: 20200224
  2. VALGANCICLOVIR [Suspect]
     Active Substance: VALGANCICLOVIR
     Indication: Lung transplant
     Dosage: MONDAY / WEDNESDAY / FRIDAY^ SMN DATED 08/29/2023
     Route: 048
  3. CELLCEPT [Suspect]
     Active Substance: MYCOPHENOLATE MOFETIL
     Indication: Product used for unknown indication
     Dates: end: 20200224
  4. CELLCEPT [Suspect]
     Active Substance: MYCOPHENOLATE MOFETIL
     Indication: Product used for unknown indication
     Route: 048
  5. CELLCEPT [Suspect]
     Active Substance: MYCOPHENOLATE MOFETIL
     Indication: Product used for unknown indication
     Dosage: TAKE ONE CAPSULE (250MG) BY MOUTH ONCE DAILY
     Route: 048
  6. RITUXIMAB [Suspect]
     Active Substance: RITUXIMAB

REACTIONS (4)
  - Cardiac failure [Unknown]
  - White blood cell count decreased [Unknown]
  - Off label use [Unknown]
  - Hyperlipidaemia [Unknown]
